FAERS Safety Report 7428031-8 (Version None)
Quarter: 2011Q2

REPORT INFORMATION
  Report Type: 
  Country: None (occurrence: None)
  Receive Date: 20110421
  Receipt Date: 20110418
  Transmission Date: 20111010
  Serious: Yes (Death, Hospitalization)
  Sender: FDA-Public Use
  Company Number: GB-BIOGENIDEC-2011BI002920

PATIENT
  Age: 54 Year
  Sex: Female

DRUGS (8)
  1. SYMBICORT [Concomitant]
  2. LANSOPRAZOLE [Concomitant]
  3. PREDNISOLONE [Concomitant]
  4. ALENDRONATE SODIUM [Concomitant]
  5. TIBOLONE [Concomitant]
  6. CALCEOS [Concomitant]
  7. TYSABRI [Suspect]
     Indication: MULTIPLE SCLEROSIS
     Dates: start: 20101104, end: 20101104
  8. NICOTINE PATCH [Concomitant]

REACTIONS (1)
  - MULTIPLE SCLEROSIS RELAPSE [None]
